FAERS Safety Report 25417094 (Version 2)
Quarter: 2025Q3

REPORT INFORMATION
  Report Type: Report from Study
  Country: CA (occurrence: CA)
  Receive Date: 20250610
  Receipt Date: 20250821
  Transmission Date: 20251020
  Serious: Yes (Hospitalization, Other)
  Sender: CHIESI
  Company Number: CA-CHIESI-2025CHF03924

PATIENT
  Age: 60 Year
  Sex: Male
  Weight: 58.96 kg

DRUGS (1)
  1. DEFERIPRONE [Suspect]
     Active Substance: DEFERIPRONE
     Indication: Thalassaemia
     Dosage: 8000 MILLIGRAM, QD
     Route: 048
     Dates: start: 20140122

REACTIONS (4)
  - Ill-defined disorder [Unknown]
  - Prescribed overdose [Not Recovered/Not Resolved]
  - Product dose omission issue [Unknown]
  - Off label use [Not Recovered/Not Resolved]

NARRATIVE: CASE EVENT DATE: 20140122
